FAERS Safety Report 13490534 (Version 2)
Quarter: 2017Q2

REPORT INFORMATION
  Report Type: Spontaneous
  Country: CA (occurrence: CA)
  Receive Date: 20170427
  Receipt Date: 20170524
  Transmission Date: 20170830
  Serious: Yes (Death, Hospitalization, Other)
  Sender: FDA-Public Use
  Company Number: CA-JNJFOC-20170426195

PATIENT
  Age: 89 Year
  Sex: Male

DRUGS (4)
  1. METOPROLOL. [Concomitant]
     Active Substance: METOPROLOL
     Route: 065
  2. XARELTO [Suspect]
     Active Substance: RIVAROXABAN
     Indication: ATRIAL FIBRILLATION
     Route: 048
     Dates: end: 20170419
  3. ADALAT [Concomitant]
     Active Substance: NIFEDIPINE
     Route: 065
  4. QVAR [Concomitant]
     Active Substance: BECLOMETHASONE DIPROPIONATE
     Route: 065

REACTIONS (3)
  - Skull fracture [Fatal]
  - Haemorrhage intracranial [Fatal]
  - Fall [Unknown]

NARRATIVE: CASE EVENT DATE: 20170419
